FAERS Safety Report 18441262 (Version 18)
Quarter: 2022Q3

REPORT INFORMATION
  Report Type: Spontaneous
  Country: GB (occurrence: GB)
  Receive Date: 20201029
  Receipt Date: 20220805
  Transmission Date: 20221026
  Serious: Yes (Hospitalization, Other)
  Sender: FDA-Public Use
  Company Number: GB-ROCHE-2225278

PATIENT
  Age: 43 Year
  Sex: Female

DRUGS (113)
  1. TRASTUZUMAB [Suspect]
     Active Substance: TRASTUZUMAB
     Indication: Breast cancer metastatic
     Dosage: 8 MILLIGRAM, Q3WK
     Route: 042
     Dates: start: 20171108
  2. TRASTUZUMAB [Suspect]
     Active Substance: TRASTUZUMAB
     Indication: HER2 positive breast cancer
     Dosage: 8 MILLIGRAM, Q3WK
     Route: 042
     Dates: start: 20171129
  3. TRASTUZUMAB [Suspect]
     Active Substance: TRASTUZUMAB
     Indication: Breast cancer
     Dosage: 8 MILLIGRAM, Q3WK
     Route: 042
     Dates: start: 20211015
  4. DOCETAXEL [Suspect]
     Active Substance: DOCETAXEL
     Indication: HER2 positive breast cancer
     Dosage: 148 MILLIGRAM, Q3WK
     Route: 042
     Dates: start: 20171108, end: 20180131
  5. DOCETAXEL [Suspect]
     Active Substance: DOCETAXEL
     Indication: Breast cancer metastatic
     Dosage: 592 MILLIGRAM, Q3WK
     Route: 042
  6. DOCETAXEL [Suspect]
     Active Substance: DOCETAXEL
     Indication: Breast cancer
     Dosage: 592 MILLIGRAM
     Route: 065
  7. DOCETAXEL [Suspect]
     Active Substance: DOCETAXEL
     Dosage: 592 MILLIGRAM
     Route: 065
  8. DOCETAXEL [Suspect]
     Active Substance: DOCETAXEL
     Dosage: 592 MILLIGRAM
     Route: 065
  9. PERTUZUMAB [Suspect]
     Active Substance: PERTUZUMAB
     Indication: HER2 positive breast cancer
     Dosage: 840 MILLIGRAM, Q3WK
     Route: 042
     Dates: start: 20181120
  10. PERTUZUMAB [Suspect]
     Active Substance: PERTUZUMAB
     Indication: Breast cancer metastatic
     Dosage: 840 MILLIGRAM, Q3WK
     Route: 042
     Dates: start: 20171108
  11. PERTUZUMAB [Suspect]
     Active Substance: PERTUZUMAB
     Indication: Breast cancer
     Dosage: 420 MILLIGRAM, Q3WK
     Route: 042
     Dates: start: 20171129
  12. PERTUZUMAB [Suspect]
     Active Substance: PERTUZUMAB
     Dosage: 840 MILLIGRAM, Q3WK
     Route: 042
     Dates: start: 20181120
  13. PERTUZUMAB [Suspect]
     Active Substance: PERTUZUMAB
     Dosage: 420 MILLIGRAM, Q3WK
     Route: 042
     Dates: start: 20171129
  14. PERTUZUMAB [Suspect]
     Active Substance: PERTUZUMAB
     Dosage: DOSE FORM: 230
     Route: 065
  15. PERTUZUMAB [Suspect]
     Active Substance: PERTUZUMAB
     Dosage: 840 MILLIGRAM, Q3WK
     Route: 042
     Dates: start: 20181120
  16. RAMIPRIL [Concomitant]
     Active Substance: RAMIPRIL
     Indication: Product used for unknown indication
     Dosage: 1.25 MILLIGRAM, QD
     Route: 048
  17. RAMIPRIL [Concomitant]
     Active Substance: RAMIPRIL
  18. METFORMIN [Concomitant]
     Active Substance: METFORMIN HYDROCHLORIDE
     Dosage: 500 MILLIGRAM, QD
     Route: 048
  19. METFORMIN [Concomitant]
     Active Substance: METFORMIN HYDROCHLORIDE
     Dosage: 1000 MILLIGRAM, QD
     Route: 048
  20. METFORMIN [Concomitant]
     Active Substance: METFORMIN HYDROCHLORIDE
     Dosage: 500 MILLIGRAM, QD
     Route: 048
  21. METFORMIN [Concomitant]
     Active Substance: METFORMIN HYDROCHLORIDE
  22. METFORMIN [Concomitant]
     Active Substance: METFORMIN HYDROCHLORIDE
  23. METFORMIN [Concomitant]
     Active Substance: METFORMIN HYDROCHLORIDE
  24. SIMVASTATIN [Concomitant]
     Active Substance: SIMVASTATIN
     Indication: Product used for unknown indication
     Dosage: 40 MILLIGRAM, QD
     Route: 048
  25. SIMVASTATIN [Concomitant]
     Active Substance: SIMVASTATIN
  26. MIRTAZAPINE [Concomitant]
     Active Substance: MIRTAZAPINE
     Indication: Product used for unknown indication
     Dosage: 45 MILLIGRAM, QD
     Route: 048
  27. MIRTAZAPINE [Concomitant]
     Active Substance: MIRTAZAPINE
  28. LINEZOLID [Concomitant]
     Active Substance: LINEZOLID
     Indication: Device related infection
     Dosage: 600 MILLIGRAM
     Route: 048
     Dates: start: 20191125, end: 20191130
  29. LINEZOLID [Concomitant]
     Active Substance: LINEZOLID
     Indication: Device related infection
     Dosage: UNK
  30. LINEZOLID [Concomitant]
     Active Substance: LINEZOLID
     Dosage: UNK
  31. LINEZOLID [Concomitant]
     Active Substance: LINEZOLID
  32. LINEZOLID [Concomitant]
     Active Substance: LINEZOLID
  33. ALBUTEROL [Concomitant]
     Active Substance: ALBUTEROL
     Indication: Product used for unknown indication
     Dosage: DOSE 2 PUFF, AS NECESSARY
     Route: 055
  34. ALBUTEROL [Concomitant]
     Active Substance: ALBUTEROL
  35. ALBUTEROL [Concomitant]
     Active Substance: ALBUTEROL
  36. ALBUTEROL [Concomitant]
     Active Substance: ALBUTEROL
  37. SODIUM PICOSULFATE [Concomitant]
     Active Substance: SODIUM PICOSULFATE
     Indication: Constipation
     Dosage: 10 MILLIGRAM IN 10 ML, QD
     Route: 048
  38. SODIUM PICOSULFATE [Concomitant]
     Active Substance: SODIUM PICOSULFATE
     Dosage: 10 MILLIGRAM, QD
     Route: 048
  39. SODIUM PICOSULFATE [Concomitant]
     Active Substance: SODIUM PICOSULFATE
     Dosage: UNK MILLIGRAM, QD
     Route: 048
  40. SODIUM PICOSULFATE [Concomitant]
     Active Substance: SODIUM PICOSULFATE
  41. SODIUM PICOSULFATE [Concomitant]
     Active Substance: SODIUM PICOSULFATE
  42. SODIUM PICOSULFATE [Concomitant]
     Active Substance: SODIUM PICOSULFATE
  43. SODIUM PICOSULFATE [Concomitant]
     Active Substance: SODIUM PICOSULFATE
  44. SODIUM PICOSULFATE [Concomitant]
     Active Substance: SODIUM PICOSULFATE
  45. SODIUM PICOSULFATE [Concomitant]
     Active Substance: SODIUM PICOSULFATE
  46. OXYCODONE [Concomitant]
     Active Substance: OXYCODONE
     Indication: Cancer pain
     Dosage: 220 MILLIGRAM, QD
     Route: 048
  47. OXYCODONE [Concomitant]
     Active Substance: OXYCODONE
     Dosage: 110 MILLIGRAM, BID
     Route: 048
  48. OXYCODONE [Concomitant]
     Active Substance: OXYCODONE
     Dosage: 220 MILLIGRAM, QD
     Route: 048
  49. OXYCODONE [Concomitant]
     Active Substance: OXYCODONE
     Dosage: 110 MILLIGRAM, BID
     Route: 048
  50. OXYCODONE [Concomitant]
     Active Substance: OXYCODONE
  51. OXYCODONE [Concomitant]
     Active Substance: OXYCODONE
  52. OXYCODONE [Concomitant]
     Active Substance: OXYCODONE
  53. OXYCODONE [Concomitant]
     Active Substance: OXYCODONE
  54. OXYCODONE [Concomitant]
     Active Substance: OXYCODONE
  55. OXYCODONE [Concomitant]
     Active Substance: OXYCODONE
  56. LACTULOSE [Concomitant]
     Active Substance: LACTULOSE
     Indication: Prophylaxis
     Dosage: 10 MILLILITER, BID (0.5 DAY)
     Route: 048
  57. LACTULOSE [Concomitant]
     Active Substance: LACTULOSE
     Indication: Prophylaxis
     Dosage: 10 MILLILITER, PER 0.5 DAY
     Route: 048
  58. LACTULOSE [Concomitant]
     Active Substance: LACTULOSE
  59. LACTULOSE [Concomitant]
     Active Substance: LACTULOSE
  60. LACTULOSE [Concomitant]
     Active Substance: LACTULOSE
  61. LACTULOSE [Concomitant]
     Active Substance: LACTULOSE
  62. LACTULOSE [Concomitant]
     Active Substance: LACTULOSE
  63. OMEPRAZOLE [Concomitant]
     Active Substance: OMEPRAZOLE
     Indication: Product used for unknown indication
     Dosage: 40 MILLIGRAM, QD
     Route: 048
     Dates: start: 201710
  64. BECLOMETHASONE DIPROPIONATE [Concomitant]
     Active Substance: BECLOMETHASONE DIPROPIONATE
     Indication: Cancer pain
     Dosage: 2 PUFF, BID
     Route: 055
  65. BECLOMETHASONE DIPROPIONATE [Concomitant]
     Active Substance: BECLOMETHASONE DIPROPIONATE
     Dosage: 2 OT, QD (DOSE 2 PUFF)
     Route: 055
  66. BECLOMETHASONE DIPROPIONATE [Concomitant]
     Active Substance: BECLOMETHASONE DIPROPIONATE
     Dosage: DOSE 2 PUFF, 0.5 DAY
     Route: 055
  67. ONDANSETRON [Concomitant]
     Active Substance: ONDANSETRON
     Indication: Product used for unknown indication
     Dosage: 4 MILLIGRAM
     Dates: start: 20181002, end: 20181002
  68. ONDANSETRON [Concomitant]
     Active Substance: ONDANSETRON
     Indication: Vomiting
  69. ONDANSETRON [Concomitant]
     Active Substance: ONDANSETRON
     Indication: Diarrhoea
  70. MORPHINE [Concomitant]
     Active Substance: MORPHINE
     Indication: Cancer pain
     Dosage: 5 MILLIGRAM
     Dates: start: 20181002, end: 20181002
  71. MORPHINE [Concomitant]
     Active Substance: MORPHINE
     Indication: Diarrhoea
  72. MORPHINE [Concomitant]
     Active Substance: MORPHINE
     Indication: Vomiting
  73. CLONAZEPAM [Concomitant]
     Active Substance: CLONAZEPAM
     Indication: Muscle spasms
     Dosage: 250 MILLIGRAM, QD
     Route: 048
     Dates: start: 202006
  74. CLONAZEPAM [Concomitant]
     Active Substance: CLONAZEPAM
     Indication: Abdominal rigidity
  75. NITROFURANTOIN [Concomitant]
     Active Substance: NITROFURANTOIN
     Indication: Urinary tract infection
     Dosage: 200 MILLIGRAM, QD
     Route: 048
     Dates: start: 20181103, end: 20181109
  76. NITROFURANTOIN [Concomitant]
     Active Substance: NITROFURANTOIN
     Dosage: 50 MILLIGRAM, QID
     Route: 048
     Dates: start: 20181103, end: 20181109
  77. CALCIUM CARBONATE\CHOLECALCIFEROL [Concomitant]
     Active Substance: CALCIUM CARBONATE\CHOLECALCIFEROL
     Dosage: 2 DOSAGE FORM, QD
     Route: 048
  78. CALCIUM CARBONATE\CHOLECALCIFEROL [Concomitant]
     Active Substance: CALCIUM CARBONATE\CHOLECALCIFEROL
     Dosage: 1 DOSAGE FORM, BID
     Route: 048
  79. CALCIUM CARBONATE\CHOLECALCIFEROL [Concomitant]
     Active Substance: CALCIUM CARBONATE\CHOLECALCIFEROL
     Dosage: 1 DOSAGE FORM  PER 0.5 DAY
     Route: 048
  80. QUETIAPINE [Concomitant]
     Active Substance: QUETIAPINE
     Indication: Depressed mood
     Dosage: 100 MILLIGRAM, QD
     Route: 048
     Dates: start: 2020, end: 2020
  81. QUETIAPINE [Concomitant]
     Active Substance: QUETIAPINE
     Dosage: 150 MILLIGRAM, QD
     Route: 048
     Dates: start: 2020
  82. QUETIAPINE [Concomitant]
     Active Substance: QUETIAPINE
     Dosage: UNK UNK, QD
     Route: 048
     Dates: start: 2020
  83. QUETIAPINE [Concomitant]
     Active Substance: QUETIAPINE
     Dosage: 100 MILLIGRAM, QD
     Route: 048
     Dates: start: 2020
  84. QUETIAPINE [Concomitant]
     Active Substance: QUETIAPINE
     Dosage: UNK UNK, QD
     Route: 048
     Dates: start: 2020
  85. CALCIUM CARBONATE [Concomitant]
     Active Substance: CALCIUM CARBONATE
     Indication: Product used for unknown indication
     Dosage: 1 DOSAGE FORM, BID
     Route: 048
  86. CALCIUM CARBONATE [Concomitant]
     Active Substance: CALCIUM CARBONATE
     Dosage: 1 DOSAGE FORM, QD
     Route: 048
  87. CALCIUM CARBONATE [Concomitant]
     Active Substance: CALCIUM CARBONATE
     Dosage: 1 DOSAGE FORM, QD
  88. CALCIUM CARBONATE [Concomitant]
     Active Substance: CALCIUM CARBONATE
     Dosage: 1 DF,0.5
  89. CALCIUM CARBONATE [Concomitant]
     Active Substance: CALCIUM CARBONATE
  90. CALCIUM CARBONATE [Concomitant]
     Active Substance: CALCIUM CARBONATE
  91. CALCIUM CARBONATE [Concomitant]
     Active Substance: CALCIUM CARBONATE
  92. CALCIUM CARBONATE [Concomitant]
     Active Substance: CALCIUM CARBONATE
  93. CALCIUM CARBONATE [Concomitant]
     Active Substance: CALCIUM CARBONATE
  94. CALCIUM CARBONATE [Concomitant]
     Active Substance: CALCIUM CARBONATE
  95. BECLOMETHASONE DIPROPIONATE [Concomitant]
     Active Substance: BECLOMETHASONE DIPROPIONATE
     Indication: Cancer pain
     Dosage: 2 PUFF, BID
     Route: 055
  96. BECLOMETHASONE DIPROPIONATE [Concomitant]
     Active Substance: BECLOMETHASONE DIPROPIONATE
     Dosage: 2 OT, QD
  97. BECLOMETHASONE DIPROPIONATE [Concomitant]
     Active Substance: BECLOMETHASONE DIPROPIONATE
     Dosage: PUFF QD
  98. BECLOMETHASONE DIPROPIONATE [Concomitant]
     Active Substance: BECLOMETHASONE DIPROPIONATE
     Dosage: 2 OT, QD (DOSE 2 PUFF)  QD
     Route: 055
  99. BECLOMETHASONE DIPROPIONATE [Concomitant]
     Active Substance: BECLOMETHASONE DIPROPIONATE
     Dosage: DOSE 2 PUFF (0.5 DAY)
     Route: 055
  100. BECLOMETHASONE DIPROPIONATE [Concomitant]
     Active Substance: BECLOMETHASONE DIPROPIONATE
     Dosage: DOSE 2 PUFF
     Route: 055
  101. BECLOMETHASONE DIPROPIONATE [Concomitant]
     Active Substance: BECLOMETHASONE DIPROPIONATE
  102. BECLOMETHASONE DIPROPIONATE [Concomitant]
     Active Substance: BECLOMETHASONE DIPROPIONATE
  103. BECLOMETHASONE DIPROPIONATE [Concomitant]
     Active Substance: BECLOMETHASONE DIPROPIONATE
  104. BECLOMETHASONE DIPROPIONATE [Concomitant]
     Active Substance: BECLOMETHASONE DIPROPIONATE
  105. BECLOMETHASONE DIPROPIONATE [Concomitant]
     Active Substance: BECLOMETHASONE DIPROPIONATE
  106. BECLOMETHASONE DIPROPIONATE [Concomitant]
     Active Substance: BECLOMETHASONE DIPROPIONATE
  107. BECLOMETHASONE DIPROPIONATE [Concomitant]
     Active Substance: BECLOMETHASONE DIPROPIONATE
  108. BECLOMETHASONE DIPROPIONATE [Concomitant]
     Active Substance: BECLOMETHASONE DIPROPIONATE
  109. BECLOMETHASONE DIPROPIONATE [Concomitant]
     Active Substance: BECLOMETHASONE DIPROPIONATE
  110. BECLOMETHASONE DIPROPIONATE [Concomitant]
     Active Substance: BECLOMETHASONE DIPROPIONATE
  111. CHOLECALCIFEROL [Concomitant]
     Active Substance: CHOLECALCIFEROL
     Dosage: 1 DOSAGE FORM, BID
     Route: 048
  112. CHOLECALCIFEROL [Concomitant]
     Active Substance: CHOLECALCIFEROL
     Dosage: 1 DOSAGE FORM ,0.5
     Route: 048
  113. CHOLECALCIFEROL [Concomitant]
     Active Substance: CHOLECALCIFEROL

REACTIONS (12)
  - Post procedural diarrhoea [Recovered/Resolved]
  - Vomiting [Recovered/Resolved]
  - Vomiting [Recovered/Resolved]
  - Nausea [Recovered/Resolved]
  - Diarrhoea [Recovered/Resolved]
  - Vascular device infection [Recovered/Resolved with Sequelae]
  - Abdominal rigidity [Recovered/Resolved with Sequelae]
  - Abdominal pain [Recovered/Resolved]
  - Vascular device infection [Recovered/Resolved]
  - Off label use [Unknown]
  - Muscle spasms [Recovered/Resolved with Sequelae]
  - Muscle spasms [Recovered/Resolved]

NARRATIVE: CASE EVENT DATE: 20180904
